FAERS Safety Report 6251951-7 (Version None)
Quarter: 2009Q2

REPORT INFORMATION
  Report Type: 
  Country: None (occurrence: None)
  Receive Date: 20090630
  Receipt Date: 20061125
  Transmission Date: 20091009
  Serious: Yes (Hospitalization)
  Sender: FDA-Public Use
  Company Number: US-ROCHE-638326

PATIENT
  Sex: Male

DRUGS (13)
  1. ENFUVIRTIDE [Suspect]
     Route: 065
     Dates: start: 20031216, end: 20080814
  2. NORVIR [Concomitant]
     Dates: start: 20010328, end: 20080514
  3. AGENERASE [Concomitant]
     Dates: start: 20010419, end: 20040216
  4. EPIVIR [Concomitant]
     Dates: start: 20010419, end: 20050418
  5. VIREAD [Concomitant]
     Dates: start: 20020219, end: 20050418
  6. LEXIVA [Concomitant]
     Dates: start: 20040216, end: 20080814
  7. TRUVADA [Concomitant]
     Dates: start: 20050418, end: 20060821
  8. ATRIPLA [Concomitant]
     Dates: start: 20061020, end: 20080814
  9. BACTRIM DS [Concomitant]
     Dates: start: 20010328, end: 20080814
  10. DIFLUCAN [Concomitant]
     Dates: start: 20010509, end: 20080814
  11. ZITHROMAX [Concomitant]
     Dates: start: 20060821, end: 20080611
  12. ZITHROMAX [Concomitant]
     Dates: start: 20080611, end: 20080601
  13. ZITHROMAX [Concomitant]
     Dates: start: 20080601, end: 20080730

REACTIONS (1)
  - BRONCHITIS [None]
